FAERS Safety Report 23190056 (Version 1)
Quarter: 2023Q4

REPORT INFORMATION
  Report Type: Spontaneous
  Country: FR (occurrence: FR)
  Receive Date: 20231116
  Receipt Date: 20231116
  Transmission Date: 20240110
  Serious: Yes (Hospitalization, Other)
  Sender: FDA-Public Use
  Company Number: FR-AFSSAPS-ST2023001416

PATIENT
  Age: 7 Year
  Sex: Female
  Weight: 19.5 kg

DRUGS (2)
  1. PREDNISONE [Suspect]
     Active Substance: PREDNISONE
     Indication: Nephrotic syndrome
     Dosage: 3.9 MILLIGRAM, ONCE A DAY
     Route: 048
  2. PROGRAF [Suspect]
     Active Substance: TACROLIMUS
     Indication: Nephrotic syndrome
     Dosage: 1,5MG 2X/J
     Route: 065
     Dates: end: 20220706

REACTIONS (1)
  - Tick-borne viral encephalitis [Recovered/Resolved]

NARRATIVE: CASE EVENT DATE: 20220705
